FAERS Safety Report 24267693 (Version 3)
Quarter: 2024Q3

REPORT INFORMATION
  Report Type: Spontaneous
  Country: AU (occurrence: AU)
  Receive Date: 20240830
  Receipt Date: 20240924
  Transmission Date: 20241017
  Serious: Yes (Life-Threatening)
  Sender: CSL BEHRING
  Company Number: AU-BEH-2024177287

PATIENT
  Age: 71 Year
  Sex: Female
  Weight: 79 kg

DRUGS (10)
  1. ALBUREX [Suspect]
     Active Substance: ALBUMIN HUMAN
     Indication: Procedural hypotension
     Dosage: 200 ML/HR
     Route: 040
     Dates: start: 20240424, end: 20240424
  2. RABEPRAZOLE [Concomitant]
     Active Substance: RABEPRAZOLE
     Dosage: 20 MG, QD
  3. RHINOCORT [Concomitant]
     Active Substance: BUDESONIDE
     Indication: Seasonal allergy
     Dosage: UNK, PRN
  4. PROPOFOL [Concomitant]
     Active Substance: PROPOFOL
     Indication: Hernia repair
  5. ROCURONIUM [Concomitant]
     Active Substance: ROCURONIUM BROMIDE
     Indication: Hernia repair
  6. REMIFENTANIL [Concomitant]
     Active Substance: REMIFENTANIL
     Indication: Hernia repair
  7. CEFAZOLIN [Concomitant]
     Active Substance: CEFAZOLIN
  8. DEXAMETHASONE [Concomitant]
     Active Substance: DEXAMETHASONE
  9. PARECOXIB [Concomitant]
     Active Substance: PARECOXIB
  10. OXYCODONE [Concomitant]
     Active Substance: OXYCODONE

REACTIONS (6)
  - Anaphylactic reaction [Recovered/Resolved]
  - Airway peak pressure increased [Recovered/Resolved]
  - Hypotension [Recovered/Resolved]
  - Bronchospasm [Recovered/Resolved]
  - Urticaria [Recovered/Resolved]
  - Generalised oedema [Recovered/Resolved]

NARRATIVE: CASE EVENT DATE: 20240424
